FAERS Safety Report 6166741-3 (Version None)
Quarter: 2009Q2

REPORT INFORMATION
  Report Type: 
  Country: None (occurrence: None)
  Receive Date: 20090424
  Receipt Date: 20090227
  Transmission Date: 20091009
  Serious: Yes (Hospitalization)
  Sender: FDA-Public Use
  Company Number: SE-PFIZER INC-2009177175

PATIENT

DRUGS (9)
  1. BLINDED *PLACEBO [Suspect]
     Indication: CARDIAC FAILURE
     Dosage: UNK,OD
     Route: 048
     Dates: start: 20071214
  2. BLINDED EPLERENONE [Suspect]
     Indication: CARDIAC FAILURE
     Dosage: UNK,OD
     Route: 048
     Dates: start: 20071214
  3. WARFARIN SODIUM [Concomitant]
     Route: 048
     Dates: start: 20081010
  4. METOPROLOL SUCCINATE [Concomitant]
     Route: 048
     Dates: start: 20071009
  5. AMLODIPINE BESILATE [Concomitant]
     Dosage: UNK
     Route: 048
     Dates: start: 20080826
  6. ENALAPRIL MALEATE [Concomitant]
     Route: 048
     Dates: start: 20071204
  7. SIMVASTATIN [Concomitant]
     Route: 048
     Dates: start: 20071214
  8. GAVISCON [Concomitant]
     Dosage: UNK
     Route: 048
     Dates: start: 20071003
  9. ZOPICLONE [Concomitant]
     Dosage: UNK
     Route: 048
     Dates: start: 20090105

REACTIONS (1)
  - BRONCHITIS [None]
